FAERS Safety Report 9078202 (Version 1)
Quarter: 2013Q1

REPORT INFORMATION
  Report Type: Spontaneous
  Country: US (occurrence: US)
  Receive Date: 20130130
  Receipt Date: 20130130
  Transmission Date: 20140127
  Serious: No
  Sender: FDA-Public Use
  Company Number: US-ABBOTT-12P-163-0958695-00

PATIENT
  Sex: Female
  Weight: 79.9 kg

DRUGS (5)
  1. HUMIRA 40 MG/0.8 ML PEN [Suspect]
     Indication: RHEUMATOID ARTHRITIS
  2. METHOTREXATE [Concomitant]
     Indication: RHEUMATOID ARTHRITIS
  3. FOLIC ACID [Concomitant]
     Indication: RHEUMATOID ARTHRITIS
  4. FOSAMAX [Concomitant]
     Indication: OSTEOPOROSIS
  5. CALCIUM WITH VITAMIN D [Concomitant]
     Indication: OSTEOPOROSIS

REACTIONS (1)
  - Cough [Not Recovered/Not Resolved]
